FAERS Safety Report 17329002 (Version 3)
Quarter: 2020Q1

REPORT INFORMATION
  Report Type: Spontaneous
  Country: US (occurrence: US)
  Receive Date: 20200127
  Receipt Date: 20200226
  Transmission Date: 20200409
  Serious: Yes (Other)
  Sender: FDA-Public Use
  Company Number: US-PFIZER INC-2020037080

PATIENT
  Age: 64 Year
  Sex: Female

DRUGS (2)
  1. ZITHROMAX [Suspect]
     Active Substance: AZITHROMYCIN DIHYDRATE
     Indication: SINUSITIS
     Dosage: 250 MG, (THREE TIMES A DAY) X 3 WEEKS
     Route: 048
     Dates: start: 201910
  2. ZITHROMAX [Suspect]
     Active Substance: AZITHROMYCIN DIHYDRATE
     Dosage: 250 MG, 2X/DAY
     Route: 048
     Dates: start: 202001

REACTIONS (5)
  - Sinusitis [Recovered/Resolved]
  - Drug ineffective [Recovered/Resolved]
  - Intentional product use issue [Unknown]
  - Product prescribing issue [Unknown]
  - Off label use [Unknown]

NARRATIVE: CASE EVENT DATE: 201911
